FAERS Safety Report 9238933 (Version 1)
Quarter: 2013Q2

REPORT INFORMATION
  Report Type: Spontaneous
  Country: IT (occurrence: IT)
  Receive Date: 20130418
  Receipt Date: 20130418
  Transmission Date: 20140414
  Serious: Yes (Hospitalization)
  Sender: FDA-Public Use
  Company Number: IT-BAYER-2013-049069

PATIENT
  Age: 32 Year
  Sex: Male

DRUGS (2)
  1. ASPIRINA [Suspect]
     Indication: VIRAL PHARYNGITIS
     Dosage: 500 MG, ONCE
     Route: 048
     Dates: start: 20130307, end: 20130307
  2. OKI [Suspect]
     Indication: VIRAL PHARYNGITIS
     Dosage: 80 MG, ONCE
     Route: 048
     Dates: start: 20130307, end: 20130307

REACTIONS (3)
  - Swelling [Recovered/Resolved]
  - Erythema [Recovered/Resolved]
  - Dysphagia [Recovered/Resolved]
